FAERS Safety Report 24969420 (Version 1)
Quarter: 2025Q1

REPORT INFORMATION
  Report Type: Report from Study
  Country: CA (occurrence: CA)
  Receive Date: 20250214
  Receipt Date: 20250214
  Transmission Date: 20250408
  Serious: No
  Sender: ROCHE
  Company Number: CA-ROCHE-10000169522

PATIENT
  Sex: Male

DRUGS (10)
  1. OCREVUS [Suspect]
     Active Substance: OCRELIZUMAB
     Indication: Primary progressive multiple sclerosis
     Dosage: MORE DOSAGE INFORMATION IS 300 MG AT DAY 0 AND 14, THEN 600 MG EVERY 6 MONTH.
     Route: 042
     Dates: start: 20210428
  2. OCREVUS [Suspect]
     Active Substance: OCRELIZUMAB
     Dosage: MORE DOSAGE INFORMATION IS 300 MG AT DAY 0 AND 14, THEN 600 MG EVERY 6 MONTH.
     Route: 042
  3. EMPAGLIFLOZIN [Concomitant]
     Active Substance: EMPAGLIFLOZIN
     Dosage: EMPAGLIFLOZIN DAYS 10
     Dates: start: 20241230
  4. ROSUVASTATIN [Concomitant]
     Active Substance: ROSUVASTATIN
     Dates: start: 20241230
  5. METFORMIN [Concomitant]
     Active Substance: METFORMIN HYDROCHLORIDE
     Dates: start: 20240829
  6. GLICLAZIDE [Concomitant]
     Active Substance: GLICLAZIDE
     Dates: start: 20240829
  7. NORTRIPTYLINE [Concomitant]
     Active Substance: NORTRIPTYLINE
     Dates: start: 20240829
  8. MORPHINE [Concomitant]
     Active Substance: MORPHINE
     Dates: start: 20240320
  9. FLUCONAZOLE [Concomitant]
     Active Substance: FLUCONAZOLE
     Dates: start: 20241230
  10. VITAMIN D3 [Concomitant]
     Active Substance: CHOLECALCIFEROL
     Dates: start: 20240321

REACTIONS (5)
  - Diabetes mellitus [Not Recovered/Not Resolved]
  - Skin infection [Unknown]
  - Eczema [Not Recovered/Not Resolved]
  - Fungal infection [Not Recovered/Not Resolved]
  - Pain in extremity [Unknown]
